FAERS Safety Report 6391008-8 (Version None)
Quarter: 2009Q4

REPORT INFORMATION
  Report Type: 
  Country: None (occurrence: None)
  Receive Date: 20091007
  Receipt Date: 20091001
  Transmission Date: 20100525
  Serious: Yes (Hospitalization, Other)
  Sender: FDA-Public Use
  Company Number: US-BIOGENIDEC-2009BI020155

PATIENT
  Age: 44 Year
  Sex: Female

DRUGS (11)
  1. TYSABRI [Suspect]
     Indication: MULTIPLE SCLEROSIS
     Route: 042
     Dates: start: 20081016
  2. PROVIGIL [Concomitant]
     Route: 048
     Dates: start: 20080528
  3. BACLOFEN [Concomitant]
     Dates: start: 20090225
  4. PERCOCET [Concomitant]
     Route: 048
     Dates: start: 20080528
  5. MAXALT [Concomitant]
     Dates: start: 20080516
  6. COMBIVENT [Concomitant]
     Route: 055
  7. ALBUTEROL [Concomitant]
     Route: 055
  8. DIOVAN [Concomitant]
     Route: 048
  9. PEXEVA [Concomitant]
     Route: 048
  10. XANAX [Concomitant]
     Route: 048
  11. WELLBUTRIN SR [Concomitant]
     Route: 048

REACTIONS (1)
  - ASTHMA [None]
